FAERS Safety Report 5755892-0 (Version None)
Quarter: 2008Q2

REPORT INFORMATION
  Report Type: 
  Country: None (occurrence: None)
  Receive Date: 20080528
  Receipt Date: 20080508
  Transmission Date: 20081010
  Serious: Yes (Death)
  Sender: FDA-Public Use
  Company Number: 2008AL004129

PATIENT
  Sex: Female

DRUGS (1)
  1. DIGOXIN [Suspect]
     Indication: DRUG USE FOR UNKNOWN INDICATION
     Dosage: 0.125MG

REACTIONS (4)
  - CARDIOVASCULAR DISORDER [None]
  - DIZZINESS [None]
  - HYPOTENSION [None]
  - NAUSEA [None]
